FAERS Safety Report 13914421 (Version 1)
Quarter: 2017Q3

REPORT INFORMATION
  Report Type: Spontaneous
  Country: US (occurrence: US)
  Receive Date: 20170828
  Receipt Date: 20170828
  Transmission Date: 20171127
  Serious: No
  Sender: FDA-Public Use
  Company Number: None

PATIENT
  Sex: Female
  Weight: 65.25 kg

DRUGS (8)
  1. PLAVIX [Concomitant]
     Active Substance: CLOPIDOGREL BISULFATE
  2. VITAMIN D [Concomitant]
     Active Substance: CHOLECALCIFEROL
  3. CALCIUM [Concomitant]
     Active Substance: CALCIUM
  4. SPIRONOLACTONE. [Concomitant]
     Active Substance: SPIRONOLACTONE
  5. CRESTOR [Concomitant]
     Active Substance: ROSUVASTATIN CALCIUM
  6. ASMANEX HFA [Suspect]
     Active Substance: MOMETASONE FUROATE
     Indication: ASTHMA
     Dosage: ?          OTHER STRENGTH:MCG;QUANTITY:1 INHALATION(S);?
     Route: 055
     Dates: start: 20170821, end: 20170824
  7. ATENOLOL. [Concomitant]
     Active Substance: ATENOLOL
  8. MULTIVITAMIN [Concomitant]
     Active Substance: VITAMINS

REACTIONS (9)
  - Fatigue [None]
  - Pharyngeal inflammation [None]
  - Dyspnoea [None]
  - Pruritus [None]
  - Tonsillar hypertrophy [None]
  - Product formulation issue [None]
  - Panic attack [None]
  - Chest discomfort [None]
  - Speech disorder [None]

NARRATIVE: CASE EVENT DATE: 20170824
